FAERS Safety Report 8053602-8 (Version None)
Quarter: 2012Q1

REPORT INFORMATION
  Report Type: 
  Country: None (occurrence: None)
  Receive Date: 20120118
  Receipt Date: 20120106
  Transmission Date: 20120608
  Serious: Yes (Other)
  Sender: FDA-Public Use
  Company Number: JP-MERCK-1112USA02193

PATIENT
  Age: 21 Year
  Sex: Female

DRUGS (4)
  1. ETOPOSIDE [Concomitant]
     Route: 065
  2. CYCLOSPORINE [Concomitant]
     Route: 048
  3. DEXAMETHASONE SODIUM PHOSPHATE [Suspect]
     Route: 042
  4. DEXAMETHASONE SODIUM PHOSPHATE [Suspect]
     Indication: HISTIOCYTOSIS HAEMATOPHAGIC
     Route: 042

REACTIONS (1)
  - PSYCHOTIC DISORDER [None]
